FAERS Safety Report 6693167-6 (Version None)
Quarter: 2010Q2

REPORT INFORMATION
  Report Type: 
  Country: None (occurrence: None)
  Receive Date: 20100421
  Receipt Date: 20100421
  Transmission Date: 20101027
  Serious: Yes (Other)
  Sender: FDA-Public Use
  Company Number: None

PATIENT
  Age: 78 Year
  Sex: Female
  Weight: 61.2356 kg

DRUGS (1)
  1. MOVIPREP [Suspect]
     Indication: COLONOSCOPY
     Dosage: PO
     Route: 048
     Dates: start: 20100301, end: 20100301

REACTIONS (5)
  - ASTHENIA [None]
  - DRUG HYPERSENSITIVITY [None]
  - PAIN [None]
  - SKIN ULCER [None]
  - VOMITING [None]
